FAERS Safety Report 17724939 (Version 1)
Quarter: 2020Q2

REPORT INFORMATION
  Report Type: Spontaneous
  Country: US (occurrence: US)
  Receive Date: 20200429
  Receipt Date: 20200429
  Transmission Date: 20200714
  Serious: No
  Sender: FDA-Public Use
  Company Number: US-PFIZER INC-2020170804

PATIENT
  Age: 37 Year
  Sex: Female
  Weight: 77.11 kg

DRUGS (16)
  1. PROMETHAZINE [Concomitant]
     Active Substance: PROMETHAZINE HYDROCHLORIDE
     Indication: NAUSEA
     Dosage: 25 MG, AS NEEDED (ONE TABLET BY MOUTH 3 TIMES A DAY AS NEEDED)
     Route: 048
     Dates: start: 201911
  2. DESVENLAFAXINE. [Concomitant]
     Active Substance: DESVENLAFAXINE
     Indication: MIGRAINE
     Dosage: 100 MG, 1X/DAY
     Dates: start: 2016
  3. NEURONTIN [Suspect]
     Active Substance: GABAPENTIN
     Indication: MENINGITIS
  4. OTEZLA [Concomitant]
     Active Substance: APREMILAST
     Indication: BEHCET^S SYNDROME
     Dosage: 30 MG, 1X/DAY
     Dates: start: 202003
  5. AMITRIPTYLINE HCL [Concomitant]
     Active Substance: AMITRIPTYLINE
     Indication: BEHCET^S SYNDROME
     Dosage: 20 MG, 1X/DAY (TWO 10MG TABLETS IN THE EVENING)
     Dates: start: 2016
  6. AIMOVIG [Concomitant]
     Active Substance: ERENUMAB-AOOE
     Indication: MIGRAINE
     Dosage: 100 MG, MONTHLY (ONCE A MONTH)
     Route: 048
     Dates: start: 2019
  7. NEURONTIN [Suspect]
     Active Substance: GABAPENTIN
     Indication: NEUROPATHY PERIPHERAL
     Dosage: 700 MG, DAILY (200MG IN THE MORNING, 200MG AT NOON, 300MG AT NIGHT)
     Dates: start: 2010
  8. FENTANYL. [Concomitant]
     Active Substance: FENTANYL
     Indication: PAIN
     Dosage: 1 DF (12 MCG; ONE PATCH, EVERY THREE DAYS)
     Dates: start: 2019
  9. CYTOXAN [Concomitant]
     Active Substance: CYCLOPHOSPHAMIDE
     Indication: THROMBOSIS PROPHYLAXIS
  10. ZEMBRACE SYMTOUCH [Concomitant]
     Active Substance: SUMATRIPTAN SUCCINATE
     Indication: MIGRAINE
     Dosage: 3 MG, AS NEEDED (ONCE, AS NEEDED)
     Dates: start: 2019
  11. ESTRADIOL. [Concomitant]
     Active Substance: ESTRADIOL
     Indication: HORMONE REPLACEMENT THERAPY
     Dosage: 2 DF, WEEKLY (0.1 MG; TWO PATCHES PER WEEK)
     Dates: start: 201906
  12. CLONAZEPAM. [Concomitant]
     Active Substance: CLONAZEPAM
     Indication: BEHCET^S SYNDROME
     Dosage: 1 MG, 3X/DAY
     Dates: start: 2016
  13. AMBIEN [Concomitant]
     Active Substance: ZOLPIDEM TARTRATE
     Indication: SLEEP DISORDER
     Dosage: UNK
  14. CYTOXAN [Concomitant]
     Active Substance: CYCLOPHOSPHAMIDE
     Indication: CHEMOTHERAPY
     Dosage: UNK
     Dates: start: 201607
  15. CYTOXAN [Concomitant]
     Active Substance: CYCLOPHOSPHAMIDE
     Indication: IMMUNOSUPPRESSANT DRUG THERAPY
  16. CELLCEPT [Concomitant]
     Active Substance: MYCOPHENOLATE MOFETIL\MYCOPHENOLATE MOFETIL HYDROCHLORIDE
     Indication: CHEMOTHERAPY
     Dosage: UNK
     Dates: start: 201911

REACTIONS (3)
  - Blood count abnormal [Unknown]
  - Product use in unapproved indication [Unknown]
  - Off label use [Unknown]

NARRATIVE: CASE EVENT DATE: 2010
